FAERS Safety Report 7872286-2 (Version None)
Quarter: 2011Q4

REPORT INFORMATION
  Report Type: 
  Country: None (occurrence: None)
  Receive Date: 20111029
  Receipt Date: 20110316
  Transmission Date: 20120403
  Serious: No
  Sender: FDA-Public Use
  Company Number: US-AMGEN-USASP2011014454

PATIENT
  Age: 51 Year
  Sex: Female
  Weight: 45.351 kg

DRUGS (1)
  1. ENBREL [Suspect]
     Indication: RHEUMATOID ARTHRITIS
     Dosage: 50 MG, QWK
     Dates: start: 20110125

REACTIONS (5)
  - COUGH [None]
  - PHARYNGITIS STREPTOCOCCAL [None]
  - INJECTION SITE REACTION [None]
  - INJECTION SITE RASH [None]
  - ALOPECIA [None]
